FAERS Safety Report 7954547-1 (Version None)
Quarter: 2011Q4

REPORT INFORMATION
  Report Type: 
  Country: None (occurrence: None)
  Receive Date: 20111202
  Receipt Date: 20111123
  Transmission Date: 20120403
  Serious: Yes (Hospitalization, Other)
  Sender: FDA-Public Use
  Company Number: PHHY2011BR103519

PATIENT
  Sex: Male

DRUGS (10)
  1. AMLODIPINE BESYLATE [Concomitant]
     Indication: HYPERTENSION
     Dosage: 1 DF, DAILY
  2. ALENIA [Concomitant]
     Indication: CHRONIC OBSTRUCTIVE PULMONARY DISEASE
     Dosage: 3 DF, DAILY
  3. DAMISIX [Concomitant]
     Indication: CHRONIC OBSTRUCTIVE PULMONARY DISEASE
     Dosage: 2 DF, DAILY
  4. CALCIUM CARBONATE W/COLECALCIFEROL [Concomitant]
     Indication: BONE LOSS
     Dosage: 2 DF, DAILY
  5. OMEPRAZOLE [Concomitant]
     Indication: GASTROINTESTINAL DISORDER
     Dosage: 1 DF, DAILY
  6. SPIRIVA [Concomitant]
     Indication: CHRONIC OBSTRUCTIVE PULMONARY DISEASE
     Dosage: 2 DF, DAILY
     Dates: start: 20030101
  7. ALBUTEROL SULFATE AUTOHALER [Concomitant]
     Indication: DYSPNOEA
     Dosage: 2 DF, UNK
     Dates: start: 20030101
  8. LEVOTHYROXINE SODIUM [Concomitant]
     Indication: HYPERTHYROIDISM
     Dosage: 1 DF, DAILY
  9. DIOVAN HCT [Suspect]
     Indication: HYPERTENSION
     Dosage: 1 DF, 160 MG VALS AND 25 MG HYDR
     Route: 048
  10. INSULIN [Concomitant]
     Indication: DIABETES MELLITUS

REACTIONS (8)
  - PNEUMONIA [None]
  - DYSPNOEA [None]
  - CHRONIC OBSTRUCTIVE PULMONARY DISEASE [None]
  - BLADDER CANCER [None]
  - NOSOCOMIAL INFECTION [None]
  - HYPERTHYROIDISM [None]
  - DIABETES MELLITUS [None]
  - BONE LOSS [None]
